FAERS Safety Report 8397888-9 (Version None)
Quarter: 2012Q2

REPORT INFORMATION
  Report Type: 
  Country: None (occurrence: None)
  Receive Date: 20120531
  Receipt Date: 20120529
  Transmission Date: 20120825
  Serious: Yes (Other)
  Sender: FDA-Public Use
  Company Number: PHEH2012US010977

PATIENT
  Sex: Female

DRUGS (14)
  1. GLEEVEC [Suspect]
     Dosage: 800 MG, UNK
  2. TRIAMTERENE [Concomitant]
     Indication: FLUID RETENTION
     Dosage: 37.5 MG, QD
     Route: 048
  3. MULTI-VITAMIN [Concomitant]
     Indication: GENERAL PHYSICAL CONDITION ABNORMAL
     Route: 048
  4. VITAMIN D [Concomitant]
     Dosage: 2000 IU, QD
     Route: 048
  5. CALCIUM [Concomitant]
     Dosage: 1500 MG, 9QD
     Route: 048
  6. GLEEVEC [Suspect]
     Indication: LEUKAEMIA
     Dosage: 400 MG, QD
     Route: 048
  7. BONIVA [Concomitant]
     Indication: BONE DISORDER
     Dosage: 150 MG, QMO
     Route: 048
  8. POTASSIUM CHLORIDE [Concomitant]
     Indication: FLUID RETENTION
     Dosage: 20 MG, QD
     Route: 048
  9. NAPROXEN [Concomitant]
     Indication: ARTHROPATHY
     Dosage: 500 MG, BID
     Route: 048
  10. DILTIAZEM [Concomitant]
     Indication: BLOOD PRESSURE ABNORMAL
     Dosage: 360 MG, QD
     Route: 048
  11. NEXIUM [Concomitant]
     Indication: GASTROOESOPHAGEAL REFLUX DISEASE
     Dosage: 400 MG, QD
     Route: 048
  12. VITAMIN C [Concomitant]
     Indication: GENERAL PHYSICAL CONDITION ABNORMAL
     Route: 048
  13. GLUCOSAMINE [Concomitant]
     Indication: ARTHROPATHY
     Route: 048
  14. VITAMIN E [Concomitant]
     Indication: GENERAL PHYSICAL CONDITION ABNORMAL
     Route: 048

REACTIONS (1)
  - TERMINAL STATE [None]
